FAERS Safety Report 14831954 (Version 2)
Quarter: 2018Q2

REPORT INFORMATION
  Report Type: Spontaneous
  Country: DE (occurrence: DE)
  Receive Date: 20180501
  Receipt Date: 20180507
  Transmission Date: 20180711
  Serious: Yes (Hospitalization)
  Sender: FDA-Public Use
  Company Number: DE-DEXPHARM-20180299

PATIENT
  Age: 62 Year
  Sex: Female
  Weight: 112 kg

DRUGS (24)
  1. APIXABAN [Concomitant]
     Active Substance: APIXABAN
     Dosage: 20000 IE / WOCHE, NACH SCHEMA
     Route: 048
  2. SIMETICON [Concomitant]
     Dosage: 20000 IE / WOCHE, NACH SCHEMA
     Route: 048
  3. HYDROMORPHON [Suspect]
     Active Substance: HYDROMORPHONE
     Dosage: 20000 IE / WOCHE, NACH SCHEMA
     Route: 048
  4. METAMIZOL [Concomitant]
     Active Substance: METAMIZOLE SODIUM
     Dosage: 20000 IE / WOCHE, NACH SCHEMA
     Route: 048
  5. SALMETEROL [Concomitant]
     Active Substance: SALMETEROL
     Dosage: 20000 IE / WOCHE, NACH SCHEMA
     Route: 055
  6. HYDROMORPHON [Suspect]
     Active Substance: HYDROMORPHONE
     Dosage: 20000 IE / WOCHE, NACH SCHEMA
     Route: 048
  7. LEVOTHYROXIN [Concomitant]
     Active Substance: LEVOTHYROXINE
     Dosage: 20000 IE / WOCHE, NACH SCHEMA
     Route: 048
  8. SALBUTAMOL [Concomitant]
     Active Substance: ALBUTEROL
     Dosage: 20000 IE / WOCHE, NACH SCHEMA
     Route: 055
  9. PREDNISOLONE. [Concomitant]
     Active Substance: PREDNISOLONE
     Dosage: 20000 IE / WOCHE, NACH SCHEMA
     Route: 048
  10. NEBIVOLOL. [Suspect]
     Active Substance: NEBIVOLOL
     Dosage: 20000 IE / WOCHE, NACH SCHEMA
     Route: 048
  11. LEVETIRACETAM. [Suspect]
     Active Substance: LEVETIRACETAM
     Dosage: 20000 IE / WEEK, ACCORDING TO THE SCHEME
     Route: 048
  12. COLECALCIFEROL [Concomitant]
     Active Substance: CHOLECALCIFEROL
     Dosage: 20000 IE / WOCHE, NACH SCHEMA
     Route: 048
  13. URSODEOXYCHOLIC ACID [Concomitant]
     Active Substance: URSODIOL
     Dosage: 20000 IE / WOCHE, NACH SCHEMA
     Route: 048
  14. GABAPENTIN. [Suspect]
     Active Substance: GABAPENTIN
     Dosage: 20000 IE / WOCHE, NACH SCHEMA
     Route: 048
  15. FUROSEMID [Suspect]
     Active Substance: FUROSEMIDE
     Dosage: 20000 IE / WOCHE, NACH SCHEMA
     Route: 048
  16. LAMOTRIGINE. [Suspect]
     Active Substance: LAMOTRIGINE
     Dosage: 20000 IE / WEEK, ACCORDING TO THE SCHEME
     Route: 048
  17. PANTOPRAZOL [Concomitant]
     Active Substance: PANTOPRAZOLE SODIUM
     Dosage: 20000 IE / WOCHE, NACH SCHEMA
     Route: 048
  18. IBANDRONIC ACID. [Concomitant]
     Active Substance: IBANDRONIC ACID
     Dosage: 20000 IE / WOCHE, NACH SCHEMA
  19. ATORVASTATIN [Concomitant]
     Active Substance: ATORVASTATIN
     Dosage: 20000 IE / WOCHE, NACH SCHEMA
     Route: 048
  20. IRBESARTAN. [Suspect]
     Active Substance: IRBESARTAN
     Dosage: 20000 IE / WOCHE, NACH SCHEMA
     Route: 048
  21. MAGNESIUM [Concomitant]
     Active Substance: MAGNESIUM
     Dosage: 20000 IE / WOCHE, NACH SCHEMA
     Route: 048
  22. LACTULOSE. [Concomitant]
     Active Substance: LACTULOSE
     Dosage: 20000 IE / WOCHE, NACH SCHEMA
     Route: 048
  23. CLONAZEPAM. [Suspect]
     Active Substance: CLONAZEPAM
     Dosage: 20000 IE / WOCHE, NACH SCHEMA
     Route: 048
  24. DIAZEPAM. [Suspect]
     Active Substance: DIAZEPAM
     Dosage: 20000 IE / WOCHE, NACH SCHEMA
     Route: 048

REACTIONS (3)
  - Wound [Unknown]
  - Syncope [Unknown]
  - Fall [Unknown]
